FAERS Safety Report 21506785 (Version 1)
Quarter: 2022Q4

REPORT INFORMATION
  Report Type: Spontaneous
  Country: IT (occurrence: IT)
  Receive Date: 20221026
  Receipt Date: 20221026
  Transmission Date: 20230113
  Serious: Yes (Other)
  Sender: FDA-Public Use
  Company Number: None

PATIENT
  Age: 68 Year
  Sex: Female

DRUGS (2)
  1. GLECAPREVIR\PIBRENTASVIR [Suspect]
     Active Substance: GLECAPREVIR\PIBRENTASVIR
     Indication: Hepatitis C
     Dosage: 3 CPR DA 100MG/40MG IN UNA UNICA SOMMINISTRAZIONE
     Route: 048
     Dates: start: 20220608, end: 20220608
  2. LISINOPRIL + IDROCLOROTIAZIDE [Concomitant]
     Indication: Hypertension
     Dosage: 20/12.5 MG/DIE
     Route: 048

REACTIONS (1)
  - Anaphylactic reaction [Recovered/Resolved]

NARRATIVE: CASE EVENT DATE: 20220608
